FAERS Safety Report 6069098-1 (Version None)
Quarter: 2009Q1

REPORT INFORMATION
  Report Type: 
  Country: None (occurrence: None)
  Receive Date: 20090206
  Receipt Date: 20090129
  Transmission Date: 20090719
  Serious: Yes (Hospitalization)
  Sender: FDA-Public Use
  Company Number: US-GENENTECH-276463

PATIENT
  Sex: Male
  Weight: 58.5 kg

DRUGS (4)
  1. BEVACIZUMAB [Suspect]
     Indication: NASOPHARYNGEAL CANCER
     Dosage: 15 MG/KG, UNK
     Route: 042
     Dates: start: 20081001
  2. CISPLATIN [Suspect]
     Indication: NASOPHARYNGEAL CANCER
     Dosage: 100 MG/M2, UNK
     Route: 042
     Dates: start: 20081001
  3. FLUOROURACIL [Suspect]
     Indication: NASOPHARYNGEAL CANCER
     Dosage: 1000 MG, UNK
  4. RADIATION [Suspect]
     Indication: NASOPHARYNGEAL CANCER
     Dosage: 70 GY, UNK
     Dates: start: 20081001, end: 20081114

REACTIONS (3)
  - DYSPHAGIA [None]
  - LYMPHOPENIA [None]
  - MUCOSAL INFLAMMATION [None]
